FAERS Safety Report 11050104 (Version 3)
Quarter: 2016Q1

REPORT INFORMATION
  Report Type: Report from Study
  Country: US (occurrence: US)
  Receive Date: 20150420
  Receipt Date: 20160301
  Transmission Date: 20160525
  Serious: Yes (Disabling, Other)
  Sender: FDA-Public Use
  Company Number: US-AMGEN-USASP2015036817

PATIENT
  Age: 55 Year
  Sex: Female

DRUGS (1)
  1. ENBREL [Suspect]
     Active Substance: ETANERCEPT
     Indication: RHEUMATOID ARTHRITIS
     Dosage: 50 MG, UNK
     Route: 065
     Dates: start: 19990101

REACTIONS (5)
  - Mobility decreased [Unknown]
  - Grip strength decreased [Unknown]
  - Rheumatoid arthritis [Unknown]
  - Disability [Unknown]
  - Pain [Not Recovered/Not Resolved]
